FAERS Safety Report 20854585 (Version 1)
Quarter: 2022Q2

REPORT INFORMATION
  Report Type: Spontaneous
  Country: US (occurrence: None)
  Receive Date: 20220519
  Receipt Date: 20220519
  Transmission Date: 20220721
  Serious: No
  Sender: FDA-Public Use
  Company Number: None

PATIENT
  Age: 73 Year
  Sex: Female

DRUGS (2)
  1. OTEZLA [Suspect]
     Active Substance: APREMILAST
     Indication: Pruritus
     Dosage: TAKE 1 TABLET BY MOUTH  TWICE DAILY  AS DIRECTED
     Route: 048
     Dates: start: 202203
  2. OTEZLA [Suspect]
     Active Substance: APREMILAST
     Indication: Dermatitis

REACTIONS (1)
  - Intentional dose omission [None]
